FAERS Safety Report 8136087-2 (Version None)
Quarter: 2012Q1

REPORT INFORMATION
  Report Type: 
  Country: None (occurrence: None)
  Receive Date: 20120214
  Receipt Date: 20120207
  Transmission Date: 20120608
  Serious: Yes (Hospitalization)
  Sender: FDA-Public Use
  Company Number: PR-ABBOTT-12P-131-0893382-00

PATIENT
  Sex: Female
  Weight: 74.456 kg

DRUGS (6)
  1. HUMIRA [Suspect]
     Indication: ARTHRITIS
     Route: 058
  2. METFORMIN HCL [Concomitant]
     Indication: DIABETES MELLITUS
     Route: 048
  3. FOLIC ACID [Concomitant]
     Indication: PRODUCT USED FOR UNKNOWN INDICATION
     Dosage: 1 MG TABLET DAILY
     Route: 048
  4. PREDNISONE TAB [Concomitant]
     Indication: PRODUCT USED FOR UNKNOWN INDICATION
     Dosage: 5MG TABLET DAILY
     Route: 048
  5. GLIMEPIRIDE [Concomitant]
     Indication: DIABETES MELLITUS
     Route: 048
  6. METHOTREXATE [Concomitant]
     Indication: ARTHRITIS
     Dosage: 15 MG, 6 TABLETS WEEKLY
     Route: 048

REACTIONS (2)
  - URINARY TRACT INFECTION [None]
  - BRONCHITIS [None]
